FAERS Safety Report 5566311-1 (Version None)
Quarter: 2007Q4

REPORT INFORMATION
  Report Type: 
  Country: None (occurrence: None)
  Receive Date: 20071214
  Receipt Date: 20071203
  Transmission Date: 20080405
  Serious: Yes (Other)
  Sender: FDA-Public Use
  Company Number: 2007337053

PATIENT
  Age: 85 Year
  Sex: Female

DRUGS (2)
  1. PHENYLEPHRINE (PHENYLEPHRINE) [Suspect]
  2. NITROGLYCERIN [Concomitant]

REACTIONS (3)
  - CARDIOVASCULAR DISORDER [None]
  - CHEST PAIN [None]
  - DYSPNOEA [None]
